FAERS Safety Report 13859905 (Version 1)
Quarter: 2017Q3

REPORT INFORMATION
  Report Type: Spontaneous
  Country: US (occurrence: US)
  Receive Date: 20170811
  Receipt Date: 20170811
  Transmission Date: 20171127
  Serious: Yes (Hospitalization, Other)
  Sender: FDA-Public Use
  Company Number: US-GLAXOSMITHKLINE-US2017124382

PATIENT
  Sex: Female

DRUGS (8)
  1. LOSARTAN. [Concomitant]
     Active Substance: LOSARTAN
  2. LEVOTHYROXINE. [Concomitant]
     Active Substance: LEVOTHYROXINE
  3. CALCITRIOL. [Concomitant]
     Active Substance: CALCITRIOL
  4. FERROUS SULFATE. [Concomitant]
     Active Substance: FERROUS SULFATE
  5. BREO ELLIPTA [Suspect]
     Active Substance: FLUTICASONE FUROATE\VILANTEROL TRIFENATATE
     Dosage: 1 PUFF(S), 1D
     Route: 055
     Dates: start: 201706
  6. BREO ELLIPTA [Suspect]
     Active Substance: FLUTICASONE FUROATE\VILANTEROL TRIFENATATE
     Indication: DYSPNOEA
     Dosage: UNK PUFF(S), UNK
     Route: 055
  7. METOPROLOL. [Concomitant]
     Active Substance: METOPROLOL
  8. PREDNISONE. [Concomitant]
     Active Substance: PREDNISONE

REACTIONS (4)
  - Cerebrovascular accident [Not Recovered/Not Resolved]
  - Lung disorder [Unknown]
  - Speech disorder [Not Recovered/Not Resolved]
  - Memory impairment [Unknown]

NARRATIVE: CASE EVENT DATE: 2017
